FAERS Safety Report 26205177 (Version 1)
Quarter: 2025Q4

REPORT INFORMATION
  Report Type: Spontaneous
  Country: EU (occurrence: EU)
  Receive Date: 20251228
  Receipt Date: 20251228
  Transmission Date: 20260118
  Serious: Yes (Hospitalization)
  Sender: TEVA
  Company Number: None

PATIENT
  Age: 73 Year
  Sex: Female

DRUGS (1)
  1. ALENDRONATE SODIUM [Suspect]
     Active Substance: ALENDRONATE SODIUM
     Indication: Hip fracture
     Dosage: WEEKLY TABLET
     Route: 065

REACTIONS (5)
  - Ageusia [Unknown]
  - Anaemia [Unknown]
  - Fatigue [Unknown]
  - Tooth loss [Unknown]
  - Duodenal ulcer [Unknown]
